FAERS Safety Report 12190181 (Version 1)
Quarter: 2016Q1

REPORT INFORMATION
  Report Type: Spontaneous
  Country: FR (occurrence: FR)
  Receive Date: 20160318
  Receipt Date: 20160318
  Transmission Date: 20160526
  Serious: Yes (Hospitalization)
  Sender: FDA-Public Use
  Company Number: FR-BIOVITRUM-2016FR0153

PATIENT
  Age: 29 Year
  Sex: Female

DRUGS (4)
  1. COLCHICINE. [Concomitant]
     Active Substance: COLCHICINE
     Indication: MUCKLE-WELLS SYNDROME
     Dosage: 1 MG
  2. COLCHICINE. [Concomitant]
     Active Substance: COLCHICINE
     Dosage: 2 MG
     Dates: start: 20140704
  3. COLCHICINE. [Concomitant]
     Active Substance: COLCHICINE
     Dosage: 0.5 MG
  4. KINERET [Suspect]
     Active Substance: ANAKINRA
     Indication: MUCKLE-WELLS SYNDROME
     Route: 058
     Dates: start: 20140623, end: 20140704

REACTIONS (5)
  - Urticaria [Recovered/Resolved]
  - Recall phenomenon [Recovered/Resolved]
  - Arthralgia [Recovered/Resolved]
  - Injection site erythema [Recovered/Resolved]
  - Injection site oedema [Recovered/Resolved]

NARRATIVE: CASE EVENT DATE: 20140630
